FAERS Safety Report 8846962 (Version 1)
Quarter: 2012Q4

REPORT INFORMATION
  Report Type: 
  Country: US (occurrence: US)
  Receive Date: 20121018
  Receipt Date: 20121018
  Transmission Date: 20130627
  Serious: Yes (Hospitalization, Other)
  Sender: FDA-Public Use
  Company Number: US-JNJFOC-20121006251

PATIENT
  Age: 80 Year
  Sex: Female

DRUGS (9)
  1. REMICADE [Suspect]
     Indication: PRODUCT USED FOR UNKNOWN INDICATION
     Route: 042
     Dates: end: 201203
  2. HUMIRA [Suspect]
     Indication: CROHN^S DISEASE
     Route: 065
     Dates: start: 201005
  3. HUMIRA [Suspect]
     Indication: CROHN^S DISEASE
     Route: 065
     Dates: start: 2012
  4. COREG [Concomitant]
     Dosage: 12.5 mg twice a day
     Route: 065
  5. FLONASE [Concomitant]
     Route: 065
  6. TYLENOL EXTRA STRENGTH [Concomitant]
     Route: 065
  7. XANAX [Concomitant]
     Route: 065
  8. CALCIUM W/ VITAMIN D [Concomitant]
     Route: 065
  9. MERCAPTOPURINE [Concomitant]
     Route: 065

REACTIONS (13)
  - Colitis ulcerative [Unknown]
  - Ventricular extrasystoles [Unknown]
  - Drug specific antibody present [Unknown]
  - Drug effect decreased [Unknown]
  - Dizziness [Unknown]
  - Hepatic enzyme increased [Unknown]
  - Gallbladder disorder [Unknown]
  - Dyspnoea [Unknown]
  - Heart valve incompetence [Unknown]
  - Hypophagia [Unknown]
  - Diarrhoea [Unknown]
  - Pyrexia [Unknown]
  - Nausea [Unknown]
